FAERS Safety Report 8983008 (Version 1)
Quarter: 2012Q4

REPORT INFORMATION
  Report Type: 
  Country: US (occurrence: US)
  Receive Date: 20121221
  Receipt Date: 20121221
  Transmission Date: 20130627
  Serious: No
  Sender: FDA-Public Use
  Company Number: US-JHP PHARMACEUTICALS, LLC-JHP201200349

PATIENT
  Sex: Female

DRUGS (1)
  1. APLISOL DIAGNOSTIC ANTIGEN [Suspect]
     Indication: ACCIDENTAL EXPOSURE TO PRODUCT
     Dosage: splashed into eye
     Route: 061
     Dates: start: 20120629, end: 20120629

REACTIONS (2)
  - Accidental exposure to product [Recovered/Resolved]
  - Eye irritation [Not Recovered/Not Resolved]
